FAERS Safety Report 11109422 (Version 1)
Quarter: 2015Q2

REPORT INFORMATION
  Report Type: Spontaneous
  Country: US (occurrence: None)
  Receive Date: 20150512
  Receipt Date: 20150512
  Transmission Date: 20150821
  Serious: Yes (Death)
  Sender: FDA-Public Use
  Company Number: None

PATIENT
  Age: 33 Year
  Sex: Male
  Weight: 95.26 kg

DRUGS (5)
  1. GABAPENTIN. [Concomitant]
     Active Substance: GABAPENTIN
  2. DIAZEPAM. [Concomitant]
     Active Substance: DIAZEPAM
  3. LYRICA [Concomitant]
     Active Substance: PREGABALIN
  4. HYDROMORPHONE [Concomitant]
     Active Substance: HYDROMORPHONE
  5. FENTANYL. [Suspect]
     Active Substance: FENTANYL
     Indication: SURGERY
     Dosage: 10 PATCHES/BOX 1 EVERY 3 DAYS
     Route: 061
     Dates: start: 201202, end: 20140924

REACTIONS (5)
  - Headache [None]
  - Asthenia [None]
  - Feeling hot [None]
  - Toxicity to various agents [None]
  - Respiratory arrest [None]

NARRATIVE: CASE EVENT DATE: 20140924
